FAERS Safety Report 6399667-0 (Version None)
Quarter: 2009Q4

REPORT INFORMATION
  Report Type: 
  Country: None (occurrence: None)
  Receive Date: 20091009
  Receipt Date: 20091009
  Transmission Date: 20100525
  Serious: Yes (Other)
  Sender: FDA-Public Use
  Company Number: None

PATIENT
  Age: 83 Year
  Sex: Male
  Weight: 56.6996 kg

DRUGS (1)
  1. PRESERVISION AREDS VITAMIN BAUSCH + LOMB [Suspect]
     Dosage: 2 ONCE A DAY PO
     Route: 048
     Dates: start: 20081015, end: 20090930

REACTIONS (1)
  - BLOOD PRESSURE INCREASED [None]
